FAERS Safety Report 20032826 (Version 3)
Quarter: 2021Q4

REPORT INFORMATION
  Report Type: Spontaneous
  Country: CA (occurrence: CA)
  Receive Date: 20211104
  Receipt Date: 20211207
  Transmission Date: 20220303
  Serious: Yes (Hospitalization, Other)
  Sender: FDA-Public Use
  Company Number: CA-CELLTRION INC.-2021CA014686

PATIENT

DRUGS (7)
  1. INFLECTRA [Suspect]
     Active Substance: INFLIXIMAB-DYYB
     Indication: Colitis ulcerative
     Dosage: 700 MG (10MG/KG) AS INITIAL DOSE
  2. INFLECTRA [Suspect]
     Active Substance: INFLIXIMAB-DYYB
     Dosage: 1 DF,WEEK 0 IN HOSPITAL. DOSAGE INFO: NOT PROVIDED
     Route: 042
     Dates: start: 20211008, end: 20211008
  3. INFLECTRA [Suspect]
     Active Substance: INFLIXIMAB-DYYB
     Dosage: 700 MG,WEEK 2,6 WEEKS, THEN EVERY 8 WEEKS. NOT YET STARTED.
     Route: 042
  4. INFLECTRA [Suspect]
     Active Substance: INFLIXIMAB-DYYB
     Dosage: 700 MG,WEEK 2,6 WEEKS, THEN EVERY 8 WEEKS.
     Route: 042
     Dates: start: 20211027
  5. INFLECTRA [Suspect]
     Active Substance: INFLIXIMAB-DYYB
     Dosage: 700 MG,WEEK 2,6 WEEKS, THEN EVERY 8 WEEKS.
     Route: 042
     Dates: start: 20211126
  6. PREDNISONE [Concomitant]
     Active Substance: PREDNISONE
     Dosage: UNK
  7. VANCOMYCIN [Concomitant]
     Active Substance: VANCOMYCIN
     Indication: Clostridium difficile colitis
     Dosage: UNK

REACTIONS (7)
  - Condition aggravated [Unknown]
  - Off label use [Unknown]
  - Inappropriate schedule of product administration [Unknown]
  - Off label use [Unknown]
  - C-reactive protein increased [Unknown]
  - Hypoalbuminaemia [Unknown]
  - Haemoglobin decreased [Unknown]
